FAERS Safety Report 9215817 (Version 1)
Quarter: 2013Q2

REPORT INFORMATION
  Report Type: Report from Study
  Country: CA (occurrence: CA)
  Receive Date: 20130408
  Receipt Date: 20130408
  Transmission Date: 20140414
  Serious: Yes (Other)
  Sender: FDA-Public Use
  Company Number: CA-JNJFOC-20130400533

PATIENT
  Age: 38 Year
  Sex: Female
  Weight: 70.9 kg

DRUGS (1)
  1. REMICADE [Suspect]
     Indication: CROHN^S DISEASE
     Route: 042

REACTIONS (3)
  - Anal fistula [Unknown]
  - Pain [Unknown]
  - Sensation of pressure [Unknown]
